FAERS Safety Report 9542894 (Version 3)
Quarter: 2013Q4

REPORT INFORMATION
  Report Type: Other
  Country: GB (occurrence: GB)
  Receive Date: 20130923
  Receipt Date: 20131014
  Transmission Date: 20140711
  Serious: Yes (Other)
  Sender: FDA-Public Use
  Company Number: GB-TAKEDA-THQ2013A05601

PATIENT
  Sex: 0

DRUGS (1)
  1. ZOTON FASTAB [Suspect]
     Dosage: 30 MG, QD
     Route: 048
     Dates: start: 20130403

REACTIONS (2)
  - Urinary tract obstruction [Not Recovered/Not Resolved]
  - pH urine increased [Not Recovered/Not Resolved]
